FAERS Safety Report 18337154 (Version 6)
Quarter: 2021Q4

REPORT INFORMATION
  Report Type: Other
  Country: AT (occurrence: AT)
  Receive Date: 20201001
  Receipt Date: 20211220
  Transmission Date: 20220303
  Serious: Yes (Hospitalization)
  Sender: FDA-Public Use
  Company Number: AT-ROCHE-2688711

PATIENT
  Age: 62 Year
  Sex: Female
  Weight: 80 kg

DRUGS (74)
  1. PERTUZUMAB [Suspect]
     Active Substance: PERTUZUMAB
     Indication: HER2 positive breast cancer
     Dosage: MOST RECENT DOSE ON 21/NOV/2017
     Route: 042
     Dates: start: 20170306
  2. TRASTUZUMAB [Suspect]
     Active Substance: TRASTUZUMAB
     Indication: HER2 positive breast cancer
     Dosage: MOST RECENT DOSE: 21/NOV/2017
     Route: 042
     Dates: start: 20170306
  3. CAPECITABINE [Suspect]
     Active Substance: CAPECITABINE
     Indication: HER2 positive breast cancer
     Route: 048
     Dates: start: 20180904, end: 20180910
  4. CAPECITABINE [Suspect]
     Active Substance: CAPECITABINE
     Route: 048
     Dates: start: 20190527, end: 201906
  5. CAPECITABINE [Suspect]
     Active Substance: CAPECITABINE
     Route: 048
     Dates: start: 20190617, end: 201909
  6. ADO-TRASTUZUMAB EMTANSINE [Suspect]
     Active Substance: ADO-TRASTUZUMAB EMTANSINE
     Indication: HER2 positive breast cancer
     Route: 042
     Dates: start: 20171212, end: 20180424
  7. ADO-TRASTUZUMAB EMTANSINE [Suspect]
     Active Substance: ADO-TRASTUZUMAB EMTANSINE
     Route: 042
     Dates: start: 20180515, end: 20180813
  8. VINORELBINE [Suspect]
     Active Substance: VINORELBINE TARTRATE
     Indication: HER2 positive breast cancer
     Route: 048
     Dates: start: 20170306, end: 20170530
  9. VINORELBINE [Suspect]
     Active Substance: VINORELBINE TARTRATE
     Route: 048
     Dates: start: 20170627, end: 20170718
  10. LAPATINIB [Suspect]
     Active Substance: LAPATINIB
     Indication: HER2 positive breast cancer
     Dosage: MOST RECENT DOSE ON 16/JAN/2019
     Route: 048
     Dates: start: 20181227
  11. LAPATINIB [Suspect]
     Active Substance: LAPATINIB
     Route: 048
     Dates: start: 20190116, end: 20190206
  12. TRASTUZUMAB [Suspect]
     Active Substance: TRASTUZUMAB
     Indication: HER2 positive breast cancer
     Route: 058
     Dates: start: 20180904, end: 20180904
  13. TRASTUZUMAB [Suspect]
     Active Substance: TRASTUZUMAB
     Route: 058
     Dates: start: 20181023, end: 20190226
  14. TRASTUZUMAB [Suspect]
     Active Substance: TRASTUZUMAB
     Route: 058
     Dates: start: 20190527, end: 20190617
  15. TRASTUZUMAB [Suspect]
     Active Substance: TRASTUZUMAB
     Route: 058
     Dates: start: 20200507, end: 20200507
  16. PASPERTIN [Concomitant]
     Dosage: ONGOING = NOT CHECKED
     Dates: start: 20171212, end: 20190907
  17. LACTULOSE [Concomitant]
     Active Substance: LACTULOSE
     Dates: start: 20171212, end: 20190907
  18. PANTOPRAZOLE SODIUM [Concomitant]
     Active Substance: PANTOPRAZOLE SODIUM
     Dosage: ONGOING = CHECKED
     Dates: start: 20170302
  19. DAFLON [Concomitant]
     Dates: end: 20190907
  20. NOVALGIN (AUSTRIA) [Concomitant]
     Indication: Back pain
     Dosage: ONGOING = NOT CHECKED
     Dates: start: 20171212, end: 20190907
  21. NOVALGIN (AUSTRIA) [Concomitant]
     Indication: Back pain
     Dosage: ONGOING = NOT CHECKED
     Dates: start: 20190315, end: 20190907
  22. NOVALGIN (AUSTRIA) [Concomitant]
     Indication: Hepatic pain
     Dosage: ONGOING = NOT CHECKED
     Dates: start: 20170327, end: 20191003
  23. TEMESTA [Concomitant]
     Dosage: ONGOING = CHECKED
     Dates: start: 20190226
  24. HYDROMORPHONE HYDROCHLORIDE [Concomitant]
     Active Substance: HYDROMORPHONE HYDROCHLORIDE
     Indication: Back pain
     Dosage: ONGOING = NOT CHECKED
     Dates: start: 20181227, end: 20190907
  25. MIRTAZAPINE [Concomitant]
     Active Substance: MIRTAZAPINE
     Dosage: ONGOING = NOT CHECKED
     Dates: start: 20190315, end: 20190907
  26. VENLAFAXINE HYDROCHLORIDE [Concomitant]
     Active Substance: VENLAFAXINE HYDROCHLORIDE
     Dosage: ONGOING = NOT CHECKED
     Dates: start: 20190315, end: 20190907
  27. DEXAMETHASONE [Concomitant]
     Active Substance: DEXAMETHASONE
     Dosage: ONGOING = NOT CHECKED
     Dates: start: 20190215, end: 20190907
  28. EDOXABAN TOSYLATE [Concomitant]
     Active Substance: EDOXABAN TOSYLATE
     Indication: Pulmonary embolism
     Dosage: ONGOING = NOT CHECKED
     Dates: start: 20190315, end: 20190907
  29. AUGMENTIN [Concomitant]
     Active Substance: AMOXICILLIN\CLAVULANATE POTASSIUM
     Indication: Respiratory tract infection
     Dates: start: 20190509, end: 20190516
  30. BISOPROLOL FUMARATE [Concomitant]
     Active Substance: BISOPROLOL FUMARATE
     Dosage: ONGOING = CHECKED
     Dates: end: 20190907
  31. LASIX [Concomitant]
     Active Substance: FUROSEMIDE
     Dosage: ONGOING = NOT CHECKED
     Dates: end: 20190907
  32. LYRICA [Concomitant]
     Active Substance: PREGABALIN
     Indication: Back pain
     Dosage: ONGOING = CHECKED
  33. SUCRALFATE [Concomitant]
     Active Substance: SUCRALFATE
     Dosage: ONGOING = NOT CHECKED
     Dates: end: 20190907
  34. CORTISONE ACETATE [Concomitant]
     Active Substance: CORTISONE ACETATE
     Indication: Respiratory tract infection
     Dosage: ONGOING = NOT CHECKED
     Dates: start: 20190615, end: 20190615
  35. BAMBUTEROL HYDROCHLORIDE [Concomitant]
     Active Substance: BAMBUTEROL HYDROCHLORIDE
  36. BUPRENORPHINE [Concomitant]
     Active Substance: BUPRENORPHINE
  37. KALIORAL (AUSTRIA) [Concomitant]
  38. KYTRIL [Concomitant]
     Active Substance: GRANISETRON HYDROCHLORIDE
     Dates: start: 20171212, end: 20180813
  39. EMEND [Concomitant]
     Active Substance: APREPITANT
     Dates: start: 20180127, end: 20180815
  40. ZYRTEC (AUSTRIA) [Concomitant]
     Indication: Pruritus
     Dates: start: 20170327, end: 20171215
  41. TRAZODONE HYDROCHLORIDE [Concomitant]
     Active Substance: TRAZODONE HYDROCHLORIDE
  42. AMOXICILLIN\CLAVULANATE POTASSIUM [Concomitant]
     Active Substance: AMOXICILLIN\CLAVULANATE POTASSIUM
     Indication: Vascular device infection
     Dates: start: 20180215, end: 20180215
  43. MIRTAZAPINE [Concomitant]
     Active Substance: MIRTAZAPINE
     Dosage: ONGOING = CHECKED
     Dates: start: 20190315, end: 20190907
  44. LOVENOX [Concomitant]
     Active Substance: ENOXAPARIN SODIUM
     Dates: start: 20180126, end: 20180208
  45. LOVENOX [Concomitant]
     Active Substance: ENOXAPARIN SODIUM
     Dates: start: 20190312, end: 20190315
  46. PASPERTIN [Concomitant]
     Dates: start: 20171212, end: 20190907
  47. DEXAMETHASONE [Concomitant]
     Active Substance: DEXAMETHASONE
     Dosage: ONGOING = CHECKED
     Dates: start: 20190215, end: 20190907
  48. DEXAMETHASONE [Concomitant]
     Active Substance: DEXAMETHASONE
     Dates: start: 20180127, end: 20180313
  49. DEXAMETHASONE [Concomitant]
     Active Substance: DEXAMETHASONE
     Dates: start: 20170829, end: 20180813
  50. EDOXABAN TOSYLATE [Concomitant]
     Active Substance: EDOXABAN TOSYLATE
     Indication: Pulmonary embolism
     Dates: start: 20190315, end: 20190907
  51. LASIX [Concomitant]
     Active Substance: FUROSEMIDE
     Dates: end: 20190907
  52. DEXAMETHASONE [Concomitant]
     Active Substance: DEXAMETHASONE
     Dates: start: 20170829, end: 20180813
  53. LYRICA [Concomitant]
     Active Substance: PREGABALIN
     Indication: Back pain
     Dates: start: 20181227, end: 20190226
  54. ZOLPIDEM [Concomitant]
     Active Substance: ZOLPIDEM TARTRATE
     Dates: start: 20190215, end: 20190315
  55. VENLAFAXINE HYDROCHLORIDE [Concomitant]
     Active Substance: VENLAFAXINE HYDROCHLORIDE
     Dates: start: 20190315, end: 20190907
  56. PANTOPRAZOLE SODIUM [Concomitant]
     Active Substance: PANTOPRAZOLE SODIUM
     Dates: start: 20170302
  57. RANITIDINE HYDROCHLORIDE [Concomitant]
     Active Substance: RANITIDINE HYDROCHLORIDE
     Indication: Chills
     Dates: start: 20170306, end: 20170306
  58. RANITIDINE HYDROCHLORIDE [Concomitant]
     Active Substance: RANITIDINE HYDROCHLORIDE
     Dates: start: 20170327, end: 20180813
  59. ACETAMINOPHEN [Concomitant]
     Active Substance: ACETAMINOPHEN
     Dates: start: 20170327, end: 20170327
  60. PARACODIN [Concomitant]
     Indication: Cough
     Dates: start: 20171212, end: 20180115
  61. PARACODIN [Concomitant]
     Dates: start: 20190510
  62. DOXYCYCLINE [Concomitant]
     Active Substance: DOXYCYCLINE
     Indication: Respiratory tract infection
     Dates: start: 20190502, end: 20190509
  63. HYDROMORPHONE HYDROCHLORIDE [Concomitant]
     Active Substance: HYDROMORPHONE HYDROCHLORIDE
     Indication: Back pain
     Dates: start: 20181227, end: 20190907
  64. HYDROMORPHONE HYDROCHLORIDE [Concomitant]
     Active Substance: HYDROMORPHONE HYDROCHLORIDE
     Dates: start: 20180403, end: 20180628
  65. HYDROMORPHONE HYDROCHLORIDE [Concomitant]
     Active Substance: HYDROMORPHONE HYDROCHLORIDE
     Dates: start: 20180628, end: 20190226
  66. DIMETHINDENE [Concomitant]
     Active Substance: DIMETHINDENE
     Indication: Chills
     Dates: start: 20170306, end: 20170306
  67. DIMETHINDENE [Concomitant]
     Active Substance: DIMETHINDENE
     Dates: start: 20170327, end: 20180313
  68. NOVALGIN (AUSTRIA) [Concomitant]
     Indication: Back pain
     Dates: start: 20171212, end: 20190907
  69. NOVALGIN (AUSTRIA) [Concomitant]
     Indication: Back pain
     Dosage: ONGOING = CHECKED
     Dates: start: 20190315, end: 20190907
  70. NOVALGIN (AUSTRIA) [Concomitant]
     Indication: Hepatic pain
     Dosage: ONGOING = CHECKED
     Dates: start: 20170327, end: 20191003
  71. NOVALGIN (AUSTRIA) [Concomitant]
     Indication: Respiratory tract infection
     Dates: start: 20190615, end: 20190615
  72. NOVALGIN (AUSTRIA) [Concomitant]
     Dates: start: 20190509, end: 20190509
  73. TEMESTA [Concomitant]
     Dates: start: 20190226
  74. PREDNISOLONE SODIUM SUCCINATE [Concomitant]
     Active Substance: PREDNISOLONE SODIUM SUCCINATE
     Indication: Chills
     Dates: start: 20170306, end: 20170306

REACTIONS (2)
  - Dyspnoea [Not Recovered/Not Resolved]
  - Respiratory tract infection [Recovered/Resolved]

NARRATIVE: CASE EVENT DATE: 20190415
